FAERS Safety Report 23107312 (Version 1)
Quarter: 2023Q4

REPORT INFORMATION
  Report Type: Spontaneous
  Country: US (occurrence: US)
  Receive Date: 20231026
  Receipt Date: 20231026
  Transmission Date: 20240110
  Serious: No
  Sender: FDA-Public Use
  Company Number: US-002147023-NVSC2023US228524

PATIENT
  Age: 80 Year
  Sex: Female

DRUGS (1)
  1. LEQVIO [Suspect]
     Active Substance: INCLISIRAN SODIUM
     Indication: Hyperlipidaemia
     Dosage: 300 MG, OTHER, (Q6 MONTHS)
     Route: 058
     Dates: start: 20230926

REACTIONS (4)
  - Myalgia [Recovered/Resolved]
  - Weight bearing difficulty [Unknown]
  - Injection site pain [Recovered/Resolved]
  - Pain in extremity [Unknown]

NARRATIVE: CASE EVENT DATE: 20230927
